FAERS Safety Report 9850721 (Version 2)
Quarter: 2014Q1

REPORT INFORMATION
  Report Type: Spontaneous
  Country: US (occurrence: US)
  Receive Date: 20140128
  Receipt Date: 20140128
  Transmission Date: 20141002
  Serious: No
  Sender: FDA-Public Use
  Company Number: US-TEVA-406695USA

PATIENT
  Sex: 0

DRUGS (1)
  1. FLUOROURACIL [Suspect]

REACTIONS (2)
  - Infusion site extravasation [Unknown]
  - Drug dose omission [Unknown]
